FAERS Safety Report 4359518-2 (Version None)
Quarter: 2004Q2

REPORT INFORMATION
  Report Type: 
  Country: None (occurrence: None)
  Receive Date: 20040512
  Receipt Date: 20040505
  Transmission Date: 20050107
  Serious: Yes (Other)
  Sender: FDA-Public Use
  Company Number: 200412034BCC

PATIENT
  Age: 21 Year
  Sex: Female
  Weight: 56.6996 kg

DRUGS (1)
  1. BACTINE LIQUID [Suspect]
     Dates: start: 20040423

REACTIONS (5)
  - ABNORMAL SENSATION IN EYE [None]
  - ACCIDENTAL EXPOSURE [None]
  - EYE BURNS [None]
  - EYE REDNESS [None]
  - VISION BLURRED [None]
